FAERS Safety Report 16875100 (Version 5)
Quarter: 2019Q4

REPORT INFORMATION
  Report Type: Spontaneous
  Country: US (occurrence: US)
  Receive Date: 20191001
  Receipt Date: 20191127
  Transmission Date: 20200122
  Serious: Yes (Hospitalization)
  Sender: FDA-Public Use
  Company Number: US-ACTELION-A-NJ2019-196196

PATIENT
  Sex: Female
  Weight: 68.93 kg

DRUGS (3)
  1. VELETRI [Suspect]
     Active Substance: EPOPROSTENOL
     Dosage: 8 NG/KG, PER MIN
     Route: 042
  2. VELETRI [Suspect]
     Active Substance: EPOPROSTENOL
     Indication: PULMONARY ARTERIAL HYPERTENSION
     Dosage: 7 NG/KG, PER MIN
     Route: 042
  3. OPSUMIT [Concomitant]
     Active Substance: MACITENTAN
     Indication: PULMONARY ARTERIAL HYPERTENSION
     Dosage: UNK
     Route: 048
     Dates: start: 20191013

REACTIONS (13)
  - Headache [Unknown]
  - Neck pain [Unknown]
  - Catheter site induration [Unknown]
  - Catheter site discolouration [Unknown]
  - Catheter site pain [Unknown]
  - Pain in jaw [Unknown]
  - Myalgia [Unknown]
  - Dizziness [Recovered/Resolved]
  - Musculoskeletal pain [Unknown]
  - Catheter site erythema [Unknown]
  - Catheter site pruritus [Unknown]
  - Chest pain [Unknown]
  - Middle insomnia [Unknown]
